FAERS Safety Report 6779911-8 (Version None)
Quarter: 2010Q2

REPORT INFORMATION
  Report Type: 
  Country: None (occurrence: None)
  Receive Date: 20100618
  Receipt Date: 20100615
  Transmission Date: 20101027
  Serious: Yes (Other)
  Sender: FDA-Public Use
  Company Number: CA-MERCK-1006USA02331

PATIENT
  Age: 77 Year
  Sex: Female

DRUGS (7)
  1. JANUVIA [Suspect]
     Route: 048
  2. ASAPHEN [Concomitant]
     Route: 048
  3. AVALIDE [Concomitant]
     Route: 048
  4. METFORMIN [Concomitant]
     Route: 065
  5. HYZAAR [Concomitant]
     Route: 065
  6. LIPITOR [Concomitant]
     Route: 048
  7. TIAZAC [Concomitant]
     Route: 048

REACTIONS (2)
  - DIARRHOEA [None]
  - INFREQUENT BOWEL MOVEMENTS [None]
